FAERS Safety Report 7290007-1 (Version None)
Quarter: 2011Q1

REPORT INFORMATION
  Report Type: 
  Country: None (occurrence: None)
  Receive Date: 20110214
  Receipt Date: 20110203
  Transmission Date: 20110831
  Serious: Yes (Other)
  Sender: FDA-Public Use
  Company Number: CA-JNJFOC-20110202001

PATIENT
  Sex: Female
  Weight: 48.8 kg

DRUGS (1)
  1. REMICADE [Suspect]
     Indication: RHEUMATOID ARTHRITIS
     Dosage: OVER 10 YEARS
     Route: 042

REACTIONS (4)
  - DRY SKIN [None]
  - YELLOW SKIN [None]
  - PRURITUS [None]
  - GLOSSODYNIA [None]
